FAERS Safety Report 6243578 (Version 3)
Quarter: 2012Q4

REPORT INFORMATION
  Report Type: 
  Country: FR (occurrence: FR)
  Receive Date: 20070222
  Receipt Date: 20120907
  Transmission Date: 20130627
  Serious: Yes (Disabling, Congenital Anomaly, Other)
  Sender: FDA-Public Use
  Company Number: FR-ABBOTT-07P-056-0359029-00

PATIENT
  Sex: Male

DRUGS (2)
  1. DEPAKINE TABLETS [Suspect]
     Indication: MATERNAL EXPOSURE TIMING UNSPECIFIED
     Route: 064
  2. FOLIC ACID [Suspect]
     Indication: MATERNAL EXPOSURE TIMING UNSPECIFIED
     Route: 064

REACTIONS (29)
  - Congenital central nervous system anomaly [Unknown]
  - Motor dysfunction [Unknown]
  - Musculoskeletal stiffness [Unknown]
  - Leukodystrophy [Unknown]
  - Scoliosis [Unknown]
  - Head deformity [Unknown]
  - Cerebral disorder [Unknown]
  - Dysmorphism [Unknown]
  - Skull malformation [Unknown]
  - Cryptorchism [Unknown]
  - Atrial septal defect [Unknown]
  - Hypotonia [Unknown]
  - Angiotensin converting enzyme inhibitor foetopathy [Unknown]
  - Motor developmental delay [Unknown]
  - Psychomotor retardation [Unknown]
  - Dysphagia [Unknown]
  - Periventricular nodular heterotopia [Unknown]
  - Periventricular nodular heterotopia [Unknown]
  - Dyspraxia [Unknown]
  - Enuresis [Unknown]
  - Encopresis [Unknown]
  - Enuresis [Unknown]
  - Foetal exposure during pregnancy [Unknown]
  - Headache [Unknown]
  - Migraine [Unknown]
  - Dysgraphia [Unknown]
  - Reading disorder [Unknown]
  - Cryptorchism [Unknown]
  - Dyspraxia [Unknown]
